FAERS Safety Report 8272051-0 (Version None)
Quarter: 2012Q2

REPORT INFORMATION
  Report Type: 
  Country: None (occurrence: None)
  Receive Date: 20120410
  Receipt Date: 20120410
  Transmission Date: 20120825
  Serious: No
  Sender: FDA-Public Use
  Company Number: US-JNJFOC-20120310617

PATIENT
  Age: 52 Year
  Sex: Male
  Weight: 81.65 kg

DRUGS (4)
  1. FENTANYL CITRATE [Suspect]
     Indication: INTERVERTEBRAL DISC PROTRUSION
     Route: 062
     Dates: start: 20100101, end: 20120301
  2. FENTANYL-100 [Suspect]
     Indication: FALL
     Route: 062
     Dates: start: 20120301
  3. FENTANYL CITRATE [Suspect]
     Indication: FALL
     Route: 062
     Dates: start: 20100101, end: 20120301
  4. FENTANYL-100 [Suspect]
     Indication: INTERVERTEBRAL DISC PROTRUSION
     Route: 062
     Dates: start: 20120301

REACTIONS (5)
  - DRUG DOSE OMISSION [None]
  - PRODUCT QUALITY ISSUE [None]
  - ADVERSE EVENT [None]
  - DYSPEPSIA [None]
  - WRONG TECHNIQUE IN DRUG USAGE PROCESS [None]
